FAERS Safety Report 12487683 (Version 2)
Quarter: 2016Q3

REPORT INFORMATION
  Report Type: Spontaneous
  Country: MX (occurrence: MX)
  Receive Date: 20160622
  Receipt Date: 20160831
  Transmission Date: 20161109
  Serious: Yes (Death, Other)
  Sender: FDA-Public Use
  Company Number: MX-SHIRE-MX201607210

PATIENT
  Age: 7 Year
  Sex: Male

DRUGS (1)
  1. ELAPRASE [Suspect]
     Active Substance: IDURSULFASE
     Indication: MUCOPOLYSACCHARIDOSIS II
     Dosage: UNK UNK, UNKNOWN
     Route: 041
     Dates: start: 2008, end: 2011

REACTIONS (10)
  - Pneumonia [Fatal]
  - Immune thrombocytopenic purpura [Unknown]
  - Leukopenia [Unknown]
  - Malaise [Unknown]
  - Pyrexia [Unknown]
  - Petechiae [Unknown]
  - Septic shock [Fatal]
  - Pancytopenia [Fatal]
  - Disease progression [Unknown]
  - Headache [Unknown]

NARRATIVE: CASE EVENT DATE: 2011
